FAERS Safety Report 12932389 (Version 1)
Quarter: 2016Q4

REPORT INFORMATION
  Report Type: Report from Study
  Country: US (occurrence: US)
  Receive Date: 20161111
  Receipt Date: 20161111
  Transmission Date: 20170207
  Serious: Yes (Hospitalization, Other)
  Sender: FDA-Public Use
  Company Number: US-BRISTOL-MYERS SQUIBB COMPANY-BMS-2016-087474

PATIENT
  Sex: Female

DRUGS (4)
  1. IPILIMUMAB [Suspect]
     Active Substance: IPILIMUMAB
     Indication: MALIGNANT MELANOMA
     Dosage: UNK UNK, Q3WK
     Route: 042
     Dates: start: 20160530
  2. IPILIMUMAB [Suspect]
     Active Substance: IPILIMUMAB
     Indication: PRODUCT USED FOR UNKNOWN INDICATION
     Dosage: UNK UNK, Q3WK
     Route: 042
     Dates: start: 20160711
  3. NIVOLUMAB [Suspect]
     Active Substance: NIVOLUMAB
     Indication: MALIGNANT MELANOMA
     Dosage: UNK UNK, Q3WK
     Route: 042
     Dates: start: 20160530
  4. NIVOLUMAB [Suspect]
     Active Substance: NIVOLUMAB
     Indication: PRODUCT USED FOR UNKNOWN INDICATION
     Dosage: UNK UNK, Q3WK
     Route: 042
     Dates: start: 20160711

REACTIONS (15)
  - Peripheral arthritis [Unknown]
  - Blood potassium decreased [Unknown]
  - Weight decreased [Unknown]
  - Rash [Unknown]
  - Colitis [Unknown]
  - Vomiting [Unknown]
  - Peripheral swelling [Unknown]
  - Visual acuity reduced [Unknown]
  - Memory impairment [Unknown]
  - Gastrointestinal injury [Unknown]
  - Pain [Unknown]
  - Fatigue [Unknown]
  - Hepatic enzyme increased [Unknown]
  - Dehydration [Unknown]
  - Thyroid disorder [Unknown]
